FAERS Safety Report 6929249-0 (Version None)
Quarter: 2010Q3

REPORT INFORMATION
  Report Type: 
  Country: None (occurrence: None)
  Receive Date: 20100812
  Receipt Date: 20100802
  Transmission Date: 20110219
  Serious: Yes (Other)
  Sender: FDA-Public Use
  Company Number: AUR-APL-2010-01943

PATIENT
  Age: 58 Year
  Sex: Female

DRUGS (3)
  1. AMLODIPINE [Suspect]
     Indication: HYPERTENSION
     Dosage: 5 MG, DAILY
  2. PRAZOSIN HCL [Suspect]
     Indication: HYPERTENSION
     Dosage: 1 MG, BID
  3. POTASSIUM CHLORIDE [Concomitant]

REACTIONS (1)
  - HYPERALDOSTERONISM [None]
